FAERS Safety Report 25591321 (Version 1)
Quarter: 2025Q3

REPORT INFORMATION
  Report Type: Spontaneous
  Country: US (occurrence: None)
  Receive Date: 20250718
  Receipt Date: 20250718
  Transmission Date: 20251021
  Serious: No
  Sender: FDA-CTU
  Company Number: None

PATIENT
  Age: 47 Year
  Sex: Male

DRUGS (9)
  1. ERIVEDGE [Suspect]
     Active Substance: VISMODEGIB
     Indication: Basal cell carcinoma
     Dosage: 150MG DAILY ORAL ?
     Route: 048
     Dates: start: 20241108, end: 20250623
  2. TESTOSTERONE [Concomitant]
     Active Substance: TESTOSTERONE
  3. COLLAGEN ULTRA W/VITAMIN C [Concomitant]
  4. DULOXETINE [Concomitant]
     Active Substance: DULOXETINE
  5. IRON [Concomitant]
     Active Substance: IRON
  6. DIETARY SUPPLEMENT\HERBALS\MILK THISTLE [Concomitant]
     Active Substance: MILK THISTLE
  7. MULTIVITAMIN ADULT 50+ [Concomitant]
  8. SOFTGELS NATROL [Concomitant]
  9. VITAMIN 8-12 [Concomitant]

REACTIONS (4)
  - Fatigue [None]
  - Taste disorder [None]
  - Muscle spasms [None]
  - Headache [None]

NARRATIVE: CASE EVENT DATE: 20250623
